FAERS Safety Report 8605429-3 (Version None)
Quarter: 2012Q3

REPORT INFORMATION
  Report Type: 
  Country: None (occurrence: None)
  Receive Date: 20120807
  Receipt Date: 20120731
  Transmission Date: 20120928
  Serious: Yes (Death, Other)
  Sender: FDA-Public Use
  Company Number: US-2012-11040

PATIENT
  Age: 57 Year
  Sex: Male

DRUGS (3)
  1. BUSULFEX [Suspect]
     Indication: BONE MARROW CONDITIONING REGIMEN
     Dosage: INTRAVENOUS
     Route: 042
  2. FLUDARABRNE (FLUDARABINE PHOSPHATE) [Concomitant]
  3. ALEMTUZUMAB (ALEMTUZUMAB) [Concomitant]

REACTIONS (7)
  - MENTAL STATUS CHANGES [None]
  - HEPATIC NECROSIS [None]
  - HEPATIC HAEMORRHAGE [None]
  - BACTERAEMIA [None]
  - DISTURBANCE IN ATTENTION [None]
  - VENOOCCLUSIVE LIVER DISEASE [None]
  - RENAL FAILURE [None]
